FAERS Safety Report 21084310 (Version 1)
Quarter: 2022Q3

REPORT INFORMATION
  Report Type: Spontaneous
  Country: US (occurrence: US)
  Receive Date: 20220714
  Receipt Date: 20220714
  Transmission Date: 20221027
  Serious: No
  Sender: FDA-Public Use
  Company Number: US-JAZZ-2022-US-015992

PATIENT
  Sex: Female

DRUGS (2)
  1. EPIDIOLEX [Suspect]
     Active Substance: CANNABIDIOL
     Indication: Seizure
     Dosage: 2.5ML AT NIGHT AND 1ML IN THE MORNING
  2. FELBATOL [Concomitant]
     Active Substance: FELBAMATE
     Dosage: UNK

REACTIONS (2)
  - Seizure [Unknown]
  - Developmental delay [Unknown]
